FAERS Safety Report 6933560-7 (Version None)
Quarter: 2010Q3

REPORT INFORMATION
  Report Type: 
  Country: None (occurrence: None)
  Receive Date: 20100820
  Receipt Date: 20100812
  Transmission Date: 20110219
  Serious: Yes (Other)
  Sender: FDA-Public Use
  Company Number: US-BRISTOL-MYERS SQUIBB COMPANY-15241656

PATIENT
  Sex: Female

DRUGS (1)
  1. IXEMPRA KIT [Suspect]
     Dosage: DOSE REDUCED TO 50 MG

REACTIONS (6)
  - BALANCE DISORDER [None]
  - DIZZINESS [None]
  - MOVEMENT DISORDER [None]
  - MUSCULAR WEAKNESS [None]
  - REPETITIVE SPEECH [None]
  - SOMNOLENCE [None]
